FAERS Safety Report 4751119-7 (Version None)
Quarter: 2005Q3

REPORT INFORMATION
  Report Type: 
  Country: None (occurrence: None)
  Receive Date: 20050822
  Receipt Date: 20050812
  Transmission Date: 20060218
  Serious: Yes (Hospitalization, Other)
  Sender: FDA-Public Use
  Company Number: 2005105624

PATIENT
  Age: 60 Year
  Sex: Male

DRUGS (11)
  1. BEXTRA [Suspect]
     Indication: ARTHRALGIA
     Dosage: 40 MG (20 MG, 2 IN 1 D), ORAL
     Route: 048
     Dates: start: 20010101, end: 20050401
  2. BEXTRA [Suspect]
     Indication: ARTHRITIS
     Dosage: 40 MG (20 MG, 2 IN 1 D), ORAL
     Route: 048
     Dates: start: 20010101, end: 20050401
  3. DOXEPIN HCL [Concomitant]
  4. CLARINEX [Concomitant]
  5. NASACORT AQ (TRIAMCINOLONE ACETONIDE) [Concomitant]
  6. KLONOPIN [Concomitant]
  7. ZANAFLEX [Concomitant]
  8. AMBIEN [Concomitant]
  9. MICARDIS [Concomitant]
  10. VICODIN [Concomitant]
  11. ALL OTHER THERAPEUTIC PRODUCTS (ALL OTHER THERAPEUTIC PRODUCTS) [Concomitant]

REACTIONS (7)
  - KNEE ARTHROPLASTY [None]
  - PHOTOSENSITIVITY REACTION [None]
  - RASH PUSTULAR [None]
  - SCAR [None]
  - SKIN EXFOLIATION [None]
  - SKIN HAEMORRHAGE [None]
  - WEIGHT DECREASED [None]
